FAERS Safety Report 8973928 (Version 1)
Quarter: 2012Q4

REPORT INFORMATION
  Report Type: 
  Country: DE (occurrence: DE)
  Receive Date: 20121218
  Receipt Date: 20121218
  Transmission Date: 20130627
  Serious: Yes (Other)
  Sender: FDA-Public Use
  Company Number: DE-GLAXOSMITHKLINE-D0078179A

PATIENT
  Age: 54 Year
  Sex: Male

DRUGS (1)
  1. VIANI [Suspect]
     Route: 055
     Dates: start: 19950601, end: 20090401

REACTIONS (2)
  - Skin exfoliation [Recovered/Resolved]
  - Adverse reaction [Unknown]
